FAERS Safety Report 9163391 (Version 1)
Quarter: 2013Q1

REPORT INFORMATION
  Report Type: Spontaneous
  Country: GB (occurrence: GB)
  Receive Date: 20130314
  Receipt Date: 20130314
  Transmission Date: 20140127
  Serious: Yes (Other)
  Sender: FDA-Public Use
  Company Number: GB-B.I. PHARMACEUTICALS,INC./RIDGEFIELD-2013-UK-00364UK

PATIENT
  Age: 42 Year
  Sex: Male

DRUGS (3)
  1. PRADAXA [Suspect]
     Indication: CEREBROVASCULAR ACCIDENT PROPHYLAXIS
     Dosage: 150 MG
     Dates: start: 201211
  2. PRADAXA [Suspect]
     Indication: ATRIAL FIBRILLATION
  3. DIAZEPAM [Concomitant]

REACTIONS (2)
  - Self-injurious ideation [Recovered/Resolved]
  - Agitation [Recovered/Resolved]
